FAERS Safety Report 15326177 (Version 1)
Quarter: 2018Q3

REPORT INFORMATION
  Report Type: Spontaneous
  Country: US (occurrence: US)
  Receive Date: 20180823
  Receipt Date: 20180823
  Transmission Date: 20181010
  Serious: Yes (Other)
  Sender: FDA-Public Use
  Company Number: None

PATIENT
  Age: 57 Year
  Sex: Male
  Weight: 75.15 kg

DRUGS (1)
  1. DOXEPIN 10 MG MANUFACTURER ^PAR PHARM^ [Suspect]
     Active Substance: DOXEPIN
     Indication: SLEEP DISORDER THERAPY
     Dosage: ?          QUANTITY:60 DF DOSAGE FORM;?
     Route: 048
     Dates: start: 20180822, end: 20180823

REACTIONS (5)
  - Oral discomfort [None]
  - Product substitution issue [None]
  - Oral pain [None]
  - Somnolence [None]
  - Speech disorder [None]

NARRATIVE: CASE EVENT DATE: 20180823
